FAERS Safety Report 7626059-6 (Version None)
Quarter: 2011Q3

REPORT INFORMATION
  Report Type: 
  Country: None (occurrence: None)
  Receive Date: 20110721
  Receipt Date: 20110708
  Transmission Date: 20111222
  Serious: Yes (Other)
  Sender: FDA-Public Use
  Company Number: US-AMGEN-KDL437043

PATIENT
  Age: 5 Month
  Sex: Female
  Weight: 3.175 kg

DRUGS (6)
  1. LOVAZA [Concomitant]
     Dosage: UNK UNK, UNK
     Route: 064
  2. CALCIUM CARBONATE [Concomitant]
     Dosage: UNK UNK, UNK
     Route: 064
  3. PREDNISONE [Concomitant]
     Dosage: UNK UNK, QD
     Route: 064
  4. ENBREL [Suspect]
     Dates: start: 20060301, end: 20100801
  5. ENBREL [Suspect]
     Indication: RHEUMATOID ARTHRITIS
     Dosage: 50 MG, Q2WK
     Route: 064
     Dates: start: 20060301
  6. FERROUS SULFATE TAB [Concomitant]
     Dosage: UNK UNK, UNK
     Route: 064

REACTIONS (1)
  - LANGERHANS' CELL HISTIOCYTOSIS [None]
